FAERS Safety Report 5133220-1 (Version None)
Quarter: 2006Q4

REPORT INFORMATION
  Report Type: 
  Country: None (occurrence: None)
  Receive Date: 20061018
  Receipt Date: 20061002
  Transmission Date: 20070319
  Serious: Yes (Life-Threatening, Hospitalization)
  Sender: FDA-Public Use
  Company Number: DSA_28788_2006

PATIENT
  Age: 57 Year
  Sex: Female

DRUGS (4)
  1. TAVOR [Suspect]
     Dosage: DF ONCE PO
     Route: 048
     Dates: start: 20060929, end: 20060929
  2. LENDORMIN [Suspect]
     Dosage: 1.75 MG ONCE PO
     Route: 048
     Dates: start: 20060929, end: 20060929
  3. SAROTEN [Suspect]
     Dosage: DF ONCE PO
     Route: 048
     Dates: start: 20060929, end: 20060929
  4. ALCOHOL (BEER OR WINE) [Suspect]
     Dosage: DF ONCE PO
     Route: 048
     Dates: start: 20060929, end: 20060929

REACTIONS (6)
  - HYPOTENSION [None]
  - MULTIPLE DRUG OVERDOSE INTENTIONAL [None]
  - MYDRIASIS [None]
  - SOPOR [None]
  - SUICIDE ATTEMPT [None]
  - TACHYCARDIA [None]
